FAERS Safety Report 8876920 (Version 1)
Quarter: 2012Q4

REPORT INFORMATION
  Report Type: 
  Country: US (occurrence: US)
  Receive Date: 20121029
  Receipt Date: 20121029
  Transmission Date: 20130627
  Serious: No
  Sender: FDA-Public Use
  Company Number: US-BAYER-2012-113045

PATIENT
  Age: 71 Year
  Sex: Female

DRUGS (2)
  1. CLIMARA PRO [Suspect]
     Indication: HOT FLASHES
     Dosage: UNK
     Route: 062
     Dates: start: 20121023
  2. CLIMARA PRO [Suspect]
     Indication: INSOMNIA

REACTIONS (3)
  - Insomnia [None]
  - Hot flush [None]
  - Product adhesion issue [None]
